FAERS Safety Report 11019807 (Version 2)
Quarter: 2015Q2

REPORT INFORMATION
  Report Type: Spontaneous
  Country: US (occurrence: US)
  Receive Date: 20150412
  Receipt Date: 20150525
  Transmission Date: 20150821
  Serious: Yes (Other)
  Sender: FDA-Public Use
  Company Number: US-JNJFOC-20140800073

PATIENT
  Age: 59 Year
  Sex: Male
  Weight: 71.67 kg

DRUGS (3)
  1. LEVOFLOXACIN. [Suspect]
     Active Substance: LEVOFLOXACIN
     Indication: URINARY TRACT INFECTION
     Dosage: STARTED SEVERAL YEARS AGO
     Route: 048
     Dates: end: 201401
  2. LEVOFLOXACIN. [Suspect]
     Active Substance: LEVOFLOXACIN
     Indication: OSTEOMYELITIS CHRONIC
     Route: 048
     Dates: start: 2014
  3. LEVOFLOXACIN. [Suspect]
     Active Substance: LEVOFLOXACIN
     Indication: OSTEOMYELITIS CHRONIC
     Dosage: STARTED SEVERAL YEARS AGO
     Route: 048
     Dates: end: 201401

REACTIONS (3)
  - Renal failure [Not Recovered/Not Resolved]
  - Product use issue [Unknown]
  - Pyrexia [Not Recovered/Not Resolved]

NARRATIVE: CASE EVENT DATE: 201401
